FAERS Safety Report 8499754-7 (Version None)
Quarter: 2012Q3

REPORT INFORMATION
  Report Type: 
  Country: None (occurrence: None)
  Receive Date: 20120710
  Receipt Date: 20120705
  Transmission Date: 20120928
  Serious: No
  Sender: FDA-Public Use
  Company Number: US-PFIZER INC-2012162437

PATIENT
  Sex: Female
  Weight: 108.39 kg

DRUGS (1)
  1. SUTENT [Suspect]
     Indication: RENAL CELL CARCINOMA
     Dosage: 50 MG, (FREQUENCY UNKNOWN)
     Dates: start: 20120427

REACTIONS (5)
  - NAUSEA [None]
  - VOMITING [None]
  - MUSCLE SPASMS [None]
  - ORAL PAIN [None]
  - FATIGUE [None]
